FAERS Safety Report 5630039-X (Version None)
Quarter: 2008Q1

REPORT INFORMATION
  Report Type: 
  Country: None (occurrence: None)
  Receive Date: 20080218
  Receipt Date: 20080208
  Transmission Date: 20080703
  Serious: Yes (Other)
  Sender: FDA-Public Use
  Company Number: BR-ABBOTT-08P-020-0436435-00

PATIENT
  Sex: Male

DRUGS (1)
  1. VALPAKINE TABLETS [Suspect]
     Indication: CONVULSION
     Route: 048

REACTIONS (2)
  - CONVULSION [None]
  - PHARMACEUTICAL PRODUCT COUNTERFEIT [None]
